FAERS Safety Report 8539088-5 (Version None)
Quarter: 2012Q2

REPORT INFORMATION
  Report Type: 
  Country: None (occurrence: None)
  Receive Date: 20120416
  Receipt Date: 20090413
  Transmission Date: 20120825
  Serious: Yes (Other)
  Sender: FDA-Public Use
  Company Number: PHEH2009US03636

PATIENT
  Sex: Female

DRUGS (2)
  1. METOPROLOL TARTRATE [Concomitant]
  2. DIOVAN [Suspect]
     Dosage: 80 MG, ORAL
     Route: 048

REACTIONS (2)
  - INCORRECT DOSE ADMINISTERED [None]
  - HYPOTENSION [None]
